FAERS Safety Report 15683385 (Version 2)
Quarter: 2022Q1

REPORT INFORMATION
  Report Type: Spontaneous
  Country: PE (occurrence: PE)
  Receive Date: 20181204
  Receipt Date: 20220128
  Transmission Date: 20220423
  Serious: Yes (Hospitalization, Other)
  Sender: FDA-Public Use
  Company Number: PE-TEVA-2018-PE-982963

PATIENT
  Age: 41 Year
  Sex: Male

DRUGS (3)
  1. ACETAMINOPHEN\MELOXICAM [Suspect]
     Active Substance: ACETAMINOPHEN\MELOXICAM
     Indication: Oropharyngeal discomfort
     Route: 065
  2. DEXACORT [Suspect]
     Active Substance: DEXAMETHASONE SODIUM PHOSPHATE
     Indication: Oropharyngeal discomfort
     Route: 065
  3. CHLORPHENIRAMINE MALEATE [Suspect]
     Active Substance: CHLORPHENIRAMINE MALEATE
     Indication: Oropharyngeal discomfort
     Route: 065

REACTIONS (5)
  - Rash [Recovering/Resolving]
  - Pigmentation disorder [Recovering/Resolving]
  - Erythema [Recovering/Resolving]
  - Urticaria [Recovering/Resolving]
  - Pain [Recovering/Resolving]

NARRATIVE: CASE EVENT DATE: 20181123
